FAERS Safety Report 7124965-2 (Version None)
Quarter: 2010Q4

REPORT INFORMATION
  Report Type: 
  Country: None (occurrence: None)
  Receive Date: 20101129
  Receipt Date: 20101124
  Transmission Date: 20110411
  Serious: Yes (Death)
  Sender: FDA-Public Use
  Company Number: BR-B.I. PHARMACEUTICALS,INC./RIDGEFIELD-2010-BR-02765BR

PATIENT
  Age: 86 Year
  Sex: Male

DRUGS (3)
  1. SPIRIVA RESPIMAT [Suspect]
     Indication: RESPIRATORY DISORDER
     Dates: start: 20050101, end: 20101120
  2. SERETIDE [Concomitant]
  3. COMBIVENT [Concomitant]

REACTIONS (4)
  - CHRONIC OBSTRUCTIVE PULMONARY DISEASE [None]
  - HYPERTENSION [None]
  - PLEURAL EFFUSION [None]
  - RESPIRATORY FAILURE [None]
